FAERS Safety Report 12378010 (Version 2)
Quarter: 2019Q1

REPORT INFORMATION
  Report Type: Spontaneous
  Country: US (occurrence: US)
  Receive Date: 20160517
  Receipt Date: 20190121
  Transmission Date: 20190417
  Serious: No
  Sender: FDA-Public Use
  Company Number: US-JNJFOC-20160423544

PATIENT
  Sex: Female

DRUGS (1)
  1. TYLENOL EXTRA STRENGTH [Suspect]
     Active Substance: ACETAMINOPHEN
     Indication: TENDONITIS
     Dosage: EVERY 4-6 HOURS
     Route: 048
     Dates: start: 2016

REACTIONS (1)
  - Visual impairment [Not Recovered/Not Resolved]
